FAERS Safety Report 6566076-0 (Version None)
Quarter: 2010Q1

REPORT INFORMATION
  Report Type: 
  Country: None (occurrence: None)
  Receive Date: 20100202
  Receipt Date: 20100118
  Transmission Date: 20100710
  Serious: Yes (Death, Hospitalization, Other)
  Sender: FDA-Public Use
  Company Number: DE-RANBAXY-2010R3-30635

PATIENT

DRUGS (4)
  1. CO- TRIMOXAZOLE [Suspect]
     Indication: PNEUMOCYSTIS JIROVECI INFECTION
     Dosage: UNK
     Route: 042
  2. GANCICLOVIR [Suspect]
     Indication: CYTOMEGALOVIRUS VIRAEMIA
     Route: 065
  3. ATOVAQUONE [Suspect]
     Indication: PNEUMOCYSTIS JIROVECI INFECTION
     Route: 065
  4. DAPSONE [Suspect]
     Indication: PNEUMOCYSTIS JIROVECI INFECTION
     Route: 065

REACTIONS (6)
  - CHOLANGITIS [None]
  - CHOLESTASIS [None]
  - DRUG TOXICITY [None]
  - HEPATOTOXICITY [None]
  - MULTI-ORGAN FAILURE [None]
  - SEPSIS [None]
